FAERS Safety Report 24534739 (Version 1)
Quarter: 2024Q4

REPORT INFORMATION
  Report Type: Spontaneous
  Country: US (occurrence: US)
  Receive Date: 20241022
  Receipt Date: 20241022
  Transmission Date: 20250114
  Serious: No
  Sender: ASCENT PHARMACEUTICALS INC
  Company Number: US-ASCENT-2024ASSPO00030

PATIENT
  Age: 50 Year
  Sex: Female

DRUGS (1)
  1. ICOSAPENT ETHYL [Suspect]
     Active Substance: ICOSAPENT ETHYL
     Indication: Product used for unknown indication
     Dosage: 4 CAPSULES A DAY, 2 TABLETS IN THE MORNING AND 2 IN THE NIGHT
     Route: 065

REACTIONS (2)
  - Intercepted product dispensing error [Unknown]
  - Product contamination physical [Unknown]

NARRATIVE: CASE EVENT DATE: 20240905
